FAERS Safety Report 4452898-9 (Version None)
Quarter: 2004Q3

REPORT INFORMATION
  Report Type: 
  Country: None (occurrence: None)
  Receive Date: 20040916
  Receipt Date: 20040902
  Transmission Date: 20050211
  Serious: Yes (Hospitalization)
  Sender: FDA-Public Use
  Company Number: 2004062385

PATIENT
  Age: 60 Year
  Sex: Female

DRUGS (4)
  1. VISTARIL CAP [Suspect]
     Indication: INSOMNIA
     Dosage: 50 MG (1 IN 1 D), ORAL
     Route: 048
     Dates: start: 20030101, end: 20040710
  2. ALPRAZOLAM [Suspect]
     Indication: INSOMNIA
     Dosage: 0.25 MG (1 IN 1 D), ORAL
     Route: 048
     Dates: start: 20030705, end: 20040710
  3. ESCITALOPRAM (ESCITALOPRAM) [Suspect]
     Indication: INSOMNIA
     Dosage: 10 MG (1 IN 1 D), ORAL
     Route: 048
     Dates: start: 20040705, end: 20040710
  4. METRONIDAZOLE [Suspect]
     Indication: ROSACEA
     Dosage: (2 IN 1 D), TOPICAL
     Route: 061
     Dates: start: 20040524

REACTIONS (4)
  - DISORIENTATION [None]
  - DRUG INTERACTION [None]
  - HYPERSENSITIVITY [None]
  - THERAPEUTIC AGENT TOXICITY [None]
